FAERS Safety Report 15846276 (Version 1)
Quarter: 2019Q1

REPORT INFORMATION
  Report Type: Report from Study
  Country: NL (occurrence: NL)
  Receive Date: 20190120
  Receipt Date: 20190120
  Transmission Date: 20190417
  Serious: Yes (Death)
  Sender: FDA-Public Use
  Company Number: PHHY2019NL011821

PATIENT
  Age: 78 Year
  Sex: Male

DRUGS (1)
  1. ZOMETA [Suspect]
     Active Substance: ZOLEDRONIC ACID
     Indication: PROSTATE CANCER
     Dosage: 4 MG/ML, PER 26 WEEKS
     Route: 042
     Dates: start: 20180801

REACTIONS (2)
  - Death [Fatal]
  - Inappropriate schedule of product administration [Unknown]

NARRATIVE: CASE EVENT DATE: 20181001
